FAERS Safety Report 9039529 (Version 1)
Quarter: 2013Q1

REPORT INFORMATION
  Report Type: Spontaneous
  Country: US (occurrence: None)
  Receive Date: 20130123
  Receipt Date: 20130123
  Transmission Date: 20140127
  Serious: No
  Sender: FDA-Public Use
  Company Number: None

PATIENT
  Sex: Female

DRUGS (1)
  1. PORTIA [Suspect]
     Dosage: 1 TAB  QD CONT. TX. PO?MID-DEC TO CURRENT 1-14-13
     Route: 048
     Dates: start: 201212, end: 20130114

REACTIONS (1)
  - Metrorrhagia [None]
